FAERS Safety Report 7051764-2 (Version None)
Quarter: 2010Q4

REPORT INFORMATION
  Report Type: 
  Country: None (occurrence: None)
  Receive Date: 20101019
  Receipt Date: 20101012
  Transmission Date: 20110411
  Serious: Yes (Life-Threatening, Hospitalization, Disabling, Other)
  Sender: FDA-Public Use
  Company Number: PHEH2006US08358

PATIENT
  Sex: Female
  Weight: 95.691 kg

DRUGS (14)
  1. ZELNORM [Suspect]
     Indication: CONSTIPATION
     Dosage: 6 MG, BID
     Route: 048
     Dates: start: 20051213, end: 20070101
  2. PERCOCET [Suspect]
     Indication: INTERVERTEBRAL DISC DEGENERATION
     Dosage: 10/ 650  PRN
     Route: 048
     Dates: start: 19970101
  3. DIAZEPAM [Suspect]
     Indication: PAIN
  4. IBUPROFEN [Concomitant]
     Indication: INTERVERTEBRAL DISC DEGENERATION
     Dosage: 800 UNK, PRN
     Route: 048
  5. SKELAXIN [Concomitant]
     Indication: INTERVERTEBRAL DISC DEGENERATION
     Dosage: 800 UNK, PRN
     Route: 048
  6. PAXIL [Concomitant]
     Indication: DEPRESSION
     Dosage: 20 MG, QD
     Route: 048
     Dates: start: 19970101
  7. MIRALAX [Concomitant]
  8. VALTREX [Concomitant]
     Indication: MIGRAINE
     Dosage: 1000 MG, UNK
  9. SOMA [Concomitant]
     Indication: MUSCLE SPASMS
     Dosage: 60 MG, BID
     Route: 048
     Dates: start: 20060320
  10. COSAMIN DS [Concomitant]
     Dosage: 3 TABS DAILY/1 WK, THEN 1-2 TABS DAILY/2 MOS
  11. LISINOPRIL [Concomitant]
     Dosage: 10/12.5 MG QD
  12. XANAX [Concomitant]
     Dosage: 1 MG, QD
  13. PREGABALIN [Concomitant]
  14. DULOXETINE HYDROCHLORIDE [Concomitant]

REACTIONS (77)
  - ABASIA [None]
  - ALOPECIA [None]
  - AMNESIA [None]
  - ANXIETY [None]
  - APPARENT DEATH [None]
  - ARTHRALGIA [None]
  - ARTHROPATHY [None]
  - ASTHENIA [None]
  - BACK PAIN [None]
  - BIPOLAR DISORDER [None]
  - BLOOD BICARBONATE INCREASED [None]
  - BLOOD UREA DECREASED [None]
  - BRAIN NEOPLASM [None]
  - BURNING SENSATION [None]
  - CARDIAC DISORDER [None]
  - CARDIOVASCULAR INSUFFICIENCY [None]
  - CHEST PAIN [None]
  - CHONDROMALACIA [None]
  - CONDITION AGGRAVATED [None]
  - CREPITATIONS [None]
  - CYCLOTHYMIC DISORDER [None]
  - DEPRESSION [None]
  - DRUG DEPENDENCE [None]
  - DRUG INEFFECTIVE [None]
  - FATIGUE [None]
  - FIBROMYALGIA [None]
  - GASTRITIS [None]
  - GASTROINTESTINAL INJURY [None]
  - GENERAL PHYSICAL HEALTH DETERIORATION [None]
  - HIGH FREQUENCY ABLATION [None]
  - HYPERTENSION [None]
  - HYPOAESTHESIA [None]
  - INJURY [None]
  - INTERVERTEBRAL DISC PROTRUSION [None]
  - IRIS DISORDER [None]
  - JOINT INJURY [None]
  - JOINT SWELLING [None]
  - LIMB INJURY [None]
  - MALAISE [None]
  - MIGRAINE [None]
  - MULTIPLE ALLERGIES [None]
  - MUSCLE SPASMS [None]
  - MUSCULAR WEAKNESS [None]
  - MYALGIA [None]
  - MYOCARDIAL INFARCTION [None]
  - NAUSEA [None]
  - NECK PAIN [None]
  - NERVE BLOCK [None]
  - NERVE INJURY [None]
  - OEDEMA PERIPHERAL [None]
  - OSTEOARTHRITIS [None]
  - PAIN [None]
  - PAIN IN EXTREMITY [None]
  - PANNICULITIS [None]
  - PRODUCT CONTAMINATION [None]
  - PSYCHOTIC DISORDER [None]
  - QUALITY OF LIFE DECREASED [None]
  - RED BLOOD CELL SEDIMENTATION RATE INCREASED [None]
  - ROAD TRAFFIC ACCIDENT [None]
  - ROTATOR CUFF SYNDROME [None]
  - SACROILIITIS [None]
  - SCAR [None]
  - SKIN PAPILLOMA [None]
  - SKIN ULCER [None]
  - SOMATISATION DISORDER [None]
  - SPINAL OSTEOARTHRITIS [None]
  - SURGERY [None]
  - SWELLING [None]
  - TENDON DISORDER [None]
  - THERAPEUTIC PROCEDURE [None]
  - THINKING ABNORMAL [None]
  - THYROXINE FREE DECREASED [None]
  - TRAUMATIC BRAIN INJURY [None]
  - VASCULAR INJURY [None]
  - VICTIM OF CRIME [None]
  - WALKING AID USER [None]
  - WEIGHT INCREASED [None]
